FAERS Safety Report 24891718 (Version 1)
Quarter: 2025Q1

REPORT INFORMATION
  Report Type: Spontaneous
  Country: SI (occurrence: SI)
  Receive Date: 20250127
  Receipt Date: 20250127
  Transmission Date: 20250409
  Serious: No
  Sender: JAZZ
  Company Number: SI-JAZZ PHARMACEUTICALS-2025-SI-001008

PATIENT
  Age: 4 Month
  Sex: Male

DRUGS (1)
  1. DEFITELIO [Suspect]
     Active Substance: DEFIBROTIDE SODIUM
     Indication: Immunodeficiency congenital

REACTIONS (1)
  - Off label use [Unknown]
